FAERS Safety Report 19612948 (Version 1)
Quarter: 2021Q3

REPORT INFORMATION
  Report Type: Spontaneous
  Country: US (occurrence: US)
  Receive Date: 20210727
  Receipt Date: 20210727
  Transmission Date: 20211014
  Serious: No
  Sender: FDA-Public Use
  Company Number: US-TEVA-2021-US-1935404

PATIENT

DRUGS (1)
  1. CLARAVIS [Suspect]
     Active Substance: ISOTRETINOIN
     Route: 065

REACTIONS (5)
  - Back pain [Unknown]
  - Adverse event [Unknown]
  - Depression [Unknown]
  - Coccydynia [Unknown]
  - Alopecia [Unknown]
